FAERS Safety Report 25385515 (Version 1)
Quarter: 2025Q2

REPORT INFORMATION
  Report Type: Spontaneous
  Country: US (occurrence: None)
  Receive Date: 20250601
  Receipt Date: 20250601
  Transmission Date: 20250717
  Serious: Yes (Disabling)
  Sender: FDA-CTU
  Company Number: None

PATIENT
  Age: 32 Year
  Sex: Female
  Weight: 85.5 kg

DRUGS (1)
  1. BOTOX [Suspect]
     Active Substance: ONABOTULINUMTOXINA
     Indication: Pollakiuria
     Dates: start: 20250129, end: 20250129

REACTIONS (4)
  - Constipation [None]
  - Urinary retention [None]
  - Pelvic pain [None]
  - Abdominal pain [None]

NARRATIVE: CASE EVENT DATE: 20250129
